FAERS Safety Report 5866977-2 (Version None)
Quarter: 2008Q3

REPORT INFORMATION
  Report Type: 
  Country: None (occurrence: None)
  Receive Date: 20080828
  Receipt Date: 20080828
  Transmission Date: 20090109
  Serious: Yes (Hospitalization)
  Sender: FDA-Public Use
  Company Number: None

PATIENT
  Age: 67 Year
  Sex: Male

DRUGS (1)
  1. CEFUROXIME [Suspect]
     Indication: CELLULITIS
     Dosage: 500 MG BID PO
     Route: 048
     Dates: start: 20080812, end: 20080821

REACTIONS (1)
  - CLOSTRIDIUM DIFFICILE COLITIS [None]
